FAERS Safety Report 7457690-9 (Version None)
Quarter: 2011Q2

REPORT INFORMATION
  Report Type: 
  Country: None (occurrence: None)
  Receive Date: 20110504
  Receipt Date: 20110414
  Transmission Date: 20111010
  Serious: Yes (Life-Threatening, Hospitalization)
  Sender: FDA-Public Use
  Company Number: US-BAYER-2010-003236

PATIENT
  Age: 29 Year
  Sex: Female
  Weight: 94.785 kg

DRUGS (6)
  1. ZYRTEC [Concomitant]
  2. YAZ [Suspect]
     Indication: CONTRACEPTION
     Dosage: UNK
     Dates: start: 20070101, end: 20080101
  3. YASMIN [Suspect]
     Indication: PRODUCT USED FOR UNKNOWN INDICATION
  4. RELAFEN [Concomitant]
     Dosage: 750 MG, BID
  5. DARVOCET [Concomitant]
  6. AMBIEN [Concomitant]

REACTIONS (6)
  - DEEP VEIN THROMBOSIS [None]
  - PAIN [None]
  - THROMBOSIS [None]
  - PULMONARY EMBOLISM [None]
  - ASTHENIA [None]
  - FATIGUE [None]
